FAERS Safety Report 7451742-5 (Version None)
Quarter: 2011Q2

REPORT INFORMATION
  Report Type: 
  Country: None (occurrence: None)
  Receive Date: 20110502
  Receipt Date: 20100720
  Transmission Date: 20111010
  Serious: No
  Sender: FDA-Public Use
  Company Number: US-ASTRAZENECA-2010SE33853

PATIENT
  Sex: Male

DRUGS (1)
  1. NEXIUM [Suspect]
     Dosage: ONCE A DAY
     Route: 048

REACTIONS (6)
  - NECK PAIN [None]
  - APHAGIA [None]
  - PAIN IN EXTREMITY [None]
  - DRUG DOSE OMISSION [None]
  - ABASIA [None]
  - BACK PAIN [None]
